FAERS Safety Report 21200244 (Version 1)
Quarter: 2022Q3

REPORT INFORMATION
  Report Type: Spontaneous
  Country: PL (occurrence: PL)
  Receive Date: 20220811
  Receipt Date: 20220811
  Transmission Date: 20221027
  Serious: Yes (Other)
  Sender: FDA-Public Use
  Company Number: PL-002147023-NVSC2020PL362630

PATIENT
  Sex: Female

DRUGS (3)
  1. DOXORUBICIN HYDROCHLORIDE [Suspect]
     Active Substance: DOXORUBICIN HYDROCHLORIDE
     Indication: Desmoid tumour
  2. MELOXICAM [Suspect]
     Active Substance: MELOXICAM
     Indication: Desmoid tumour
  3. IMATINIB [Suspect]
     Active Substance: IMATINIB
     Indication: Desmoid tumour

REACTIONS (2)
  - Laryngeal stenosis [Unknown]
  - Neoplasm progression [Unknown]
